FAERS Safety Report 4270069-6 (Version None)
Quarter: 2004Q1

REPORT INFORMATION
  Report Type: 
  Country: None (occurrence: None)
  Receive Date: 20040113
  Receipt Date: 20040113
  Transmission Date: 20041129
  Serious: Yes (Hospitalization)
  Sender: FDA-Public Use
  Company Number: None

PATIENT
  Age: 81 Year
  Sex: Male

DRUGS (11)
  1. KETOROLAC [Suspect]
     Indication: PAIN
  2. SERTRALINE HCL [Concomitant]
  3. AMIODARONE HCL [Concomitant]
  4. COMBIVENT [Concomitant]
  5. PLAVIX [Concomitant]
  6. KCL TAB [Concomitant]
  7. ACIPHEX [Concomitant]
  8. METOPROLOL [Concomitant]
  9. GLYBURIDE [Concomitant]
  10. FUROSEMIDE [Concomitant]
  11. METOLAZONE [Concomitant]

REACTIONS (2)
  - HALLUCINATION, AUDITORY [None]
  - HALLUCINATION, VISUAL [None]
